FAERS Safety Report 10559962 (Version 1)
Quarter: 2014Q4

REPORT INFORMATION
  Report Type: Spontaneous
  Country: US (occurrence: None)
  Receive Date: 20141030
  Receipt Date: 20141030
  Transmission Date: 20150529
  Serious: Yes (Other)
  Sender: FDA-Public Use
  Company Number: A1049313A

PATIENT
  Age: 57 Year
  Sex: Male

DRUGS (6)
  1. ANTI-CHOLESTEROL MEDICATION [Concomitant]
     Active Substance: UNSPECIFIED INGREDIENT
  2. NORVIR [Concomitant]
     Active Substance: RITONAVIR
  3. SELZENTRY [Suspect]
     Active Substance: MARAVIROC
     Indication: HIV TEST
     Route: 048
  4. ISENTRESS [Concomitant]
     Active Substance: RALTEGRAVIR POTASSIUM
  5. BLOOD PRESSURE MEDICATION [Concomitant]
     Active Substance: UNSPECIFIED INGREDIENT
  6. PREZISTA [Concomitant]
     Active Substance: DARUNAVIR ETHANOLATE

REACTIONS (10)
  - Nerve injury [None]
  - Memory impairment [None]
  - Dyspnoea [None]
  - Ill-defined disorder [None]
  - Malaise [None]
  - Myalgia [None]
  - Cognitive disorder [None]
  - Apparent death [None]
  - Arthropathy [None]
  - Cerebrovascular accident [None]

NARRATIVE: CASE EVENT DATE: 201004
